FAERS Safety Report 6787995-6 (Version None)
Quarter: 2010Q2

REPORT INFORMATION
  Report Type: 
  Country: None (occurrence: None)
  Receive Date: 20100623
  Receipt Date: 20071121
  Transmission Date: 20101027
  Serious: No
  Sender: FDA-Public Use
  Company Number: US-PFIZER INC-2007099026

PATIENT
  Sex: Female
  Weight: 61.23 kg

DRUGS (1)
  1. DEPO-PROVERA SUSPENSION/INJ [Suspect]
     Indication: CONTRACEPTION
     Route: 030
     Dates: start: 19940731

REACTIONS (4)
  - BREAST PAIN [None]
  - BREAST SWELLING [None]
  - FATIGUE [None]
  - UTERINE SPASM [None]
